FAERS Safety Report 25104822 (Version 1)
Quarter: 2025Q1

REPORT INFORMATION
  Report Type: Spontaneous
  Country: US (occurrence: US)
  Receive Date: 20250321
  Receipt Date: 20250321
  Transmission Date: 20250408
  Serious: No
  Sender: FERRING
  Company Number: US-FERRINGPH-2024FE06093

PATIENT
  Age: 87 Year
  Sex: Female

DRUGS (1)
  1. REBYOTA [Suspect]
     Active Substance: DONOR HUMAN STOOL
     Indication: Clostridium difficile infection
     Dosage: 150 ML, ONCE/SINGLE
     Route: 054
     Dates: start: 20241026, end: 20241026

REACTIONS (2)
  - Intentional product use issue [Unknown]
  - Clostridium test positive [Recovering/Resolving]

NARRATIVE: CASE EVENT DATE: 20241026
